FAERS Safety Report 21987138 (Version 2)
Quarter: 2023Q1

REPORT INFORMATION
  Report Type: Report from Study
  Country: CA (occurrence: CA)
  Receive Date: 20230213
  Receipt Date: 20230217
  Transmission Date: 20230417
  Serious: Yes (Other)
  Sender: FDA-Public Use
  Company Number: CA-JNJFOC-20201128136

PATIENT
  Age: 2 Year
  Sex: Female
  Weight: 15 kg

DRUGS (5)
  1. REMICADE [Suspect]
     Active Substance: INFLIXIMAB
     Indication: Colitis ulcerative
     Dosage: DOSE: 5 MG/KG. ON 25-NOV-2020, THE PATIENT RECEIVED 1ST REMICADE INFUSION AT DOSE OF 250 MG.?ON 13-F
     Route: 041
     Dates: start: 20201125
  2. REMICADE [Suspect]
     Active Substance: INFLIXIMAB
     Route: 041
     Dates: start: 20210217
  3. REMICADE [Suspect]
     Active Substance: INFLIXIMAB
     Route: 041
     Dates: start: 20210225
  4. REMICADE [Suspect]
     Active Substance: INFLIXIMAB
     Dosage: AT A BSA DOSING OF 400 MG/M2, WE^D LIKE TO MOVE UP HER DOSE TO 300 MG
     Route: 041
  5. REMICADE [Suspect]
     Active Substance: INFLIXIMAB
     Route: 041

REACTIONS (7)
  - Haemorrhage [Unknown]
  - Haematochezia [Unknown]
  - Drug level increased [Unknown]
  - Gastrointestinal inflammation [Unknown]
  - Drug level decreased [Unknown]
  - Drug ineffective [Unknown]
  - Off label use [Unknown]

NARRATIVE: CASE EVENT DATE: 20201125
